FAERS Safety Report 5210634-2 (Version None)
Quarter: 2006Q4

REPORT INFORMATION
  Report Type: 
  Country: None (occurrence: None)
  Receive Date: 20061106
  Receipt Date: 20060811
  Transmission Date: 20070319
  Serious: No
  Sender: FDA-Public Use
  Company Number: VNL_0185_2006

PATIENT
  Age: 44 Year
  Sex: Female
  Weight: 77.1115 kg

DRUGS (1)
  1. APOKYN [Suspect]
     Dates: start: 20060811, end: 20060811

REACTIONS (3)
  - ACCIDENTAL NEEDLE STICK [None]
  - NO ADVERSE DRUG EFFECT [None]
  - PHARMACEUTICAL PRODUCT COMPLAINT [None]
